FAERS Safety Report 6984613-9 (Version None)
Quarter: 2010Q3

REPORT INFORMATION
  Report Type: 
  Country: None (occurrence: None)
  Receive Date: 20100915
  Receipt Date: 20100906
  Transmission Date: 20110219
  Serious: Yes (Other)
  Sender: FDA-Public Use
  Company Number: PT-PFIZER INC-2010112101

PATIENT
  Age: 68 Year
  Sex: Male

DRUGS (6)
  1. CARDURA [Suspect]
     Indication: BENIGN PROSTATIC HYPERPLASIA
     Dosage: 4 MG, 1X/DAY
     Route: 048
     Dates: start: 20100401, end: 20100601
  2. CARDURA [Suspect]
     Dosage: 8 MG, 1X/DAY
     Route: 048
     Dates: start: 20100601
  3. PERMIXON [Concomitant]
     Dosage: UNK
  4. OLMESARTAN MEDOXOMIL [Concomitant]
     Indication: HYPERTENSION
     Dosage: UNK
     Route: 048
  5. VASTAREL [Concomitant]
     Dosage: UNK
     Route: 048
  6. BETASERC [Concomitant]
     Dosage: UNK
     Route: 048

REACTIONS (3)
  - DRUG EFFECT DECREASED [None]
  - DYSURIA [None]
  - URINE OUTPUT DECREASED [None]
